FAERS Safety Report 9921275 (Version 5)
Quarter: 2014Q2

REPORT INFORMATION
  Report Type: Report from Study
  Country: IT (occurrence: IT)
  Receive Date: 20140225
  Receipt Date: 20140530
  Transmission Date: 20141212
  Serious: Yes (Hospitalization)
  Sender: FDA-Public Use
  Company Number: IT-ROCHE-1349916

PATIENT
  Age: 67 Year
  Sex: Male
  Weight: 76 kg

DRUGS (5)
  1. VEMURAFENIB [Suspect]
     Indication: MALIGNANT MELANOMA
     Dosage: DATE OF LAST DOSE PRIOR TO SAE: 20/DEC/2013
     Route: 048
     Dates: start: 20120207
  2. CRESTOR [Concomitant]
     Route: 065
     Dates: start: 20110103
  3. CARDIRENE [Concomitant]
     Route: 065
     Dates: start: 20110103
  4. TILDIEM [Concomitant]
     Route: 065
     Dates: start: 20110103
  5. LORAZEPAM [Concomitant]
     Route: 065
     Dates: start: 2013

REACTIONS (1)
  - Renal failure acute [Recovered/Resolved]
